FAERS Safety Report 5669075-6 (Version None)
Quarter: 2008Q1

REPORT INFORMATION
  Report Type: 
  Country: None (occurrence: None)
  Receive Date: 20080317
  Receipt Date: 20080306
  Transmission Date: 20080703
  Serious: Yes (Other)
  Sender: FDA-Public Use
  Company Number: FR-AVENTIS-200810976FR

PATIENT
  Sex: Female

DRUGS (1)
  1. KETEK [Suspect]

REACTIONS (1)
  - DELIRIUM [None]
